FAERS Safety Report 13694008 (Version 8)
Quarter: 2020Q3

REPORT INFORMATION
  Report Type: Report from Study
  Country: BE (occurrence: BE)
  Receive Date: 20170627
  Receipt Date: 20171208
  Transmission Date: 20201105
  Serious: Yes (Life-Threatening, Hospitalization, Disabling, Other)
  Sender: FDA-Public Use
  Company Number: BE-JNJFOC-20170423042

PATIENT
  Age: 49 Year
  Sex: Female
  Weight: 56.3 kg

DRUGS (12)
  1. COLITOFALK [Concomitant]
     Active Substance: MESALAMINE
     Route: 048
  2. MEDROL [Concomitant]
     Active Substance: METHYLPREDNISOLONE
     Indication: COLITIS ULCERATIVE
     Route: 048
     Dates: start: 20161226
  3. USTEKINUMAB [Suspect]
     Active Substance: USTEKINUMAB
     Indication: COLITIS ULCERATIVE
     Dosage: INTRAVENOUS AND SUBCUTANEOUS BOTH ROUTE WERE GIVEN
     Dates: start: 20170124
  4. SPASMOMEN [Concomitant]
     Active Substance: OTILONIUM BROMIDE
     Route: 048
     Dates: start: 20170224, end: 20170304
  5. PARACETAMOL [Concomitant]
     Active Substance: ACETAMINOPHEN
     Route: 048
     Dates: start: 20170315, end: 20170315
  6. USTEKINUMAB [Suspect]
     Active Substance: USTEKINUMAB
  7. CALX PLUS [Concomitant]
     Route: 048
  8. PARACETAMOL [Concomitant]
     Active Substance: ACETAMINOPHEN
     Route: 048
     Dates: start: 20170320, end: 20170320
  9. SOLU?MEDROL [Concomitant]
     Active Substance: METHYLPREDNISOLONE SODIUM SUCCINATE
     Indication: COLITIS ULCERATIVE
     Route: 042
     Dates: start: 20170412, end: 20170412
  10. MEDROL [Concomitant]
     Active Substance: METHYLPREDNISOLONE
     Indication: COLITIS ULCERATIVE
     Route: 048
     Dates: start: 20170413, end: 20170414
  11. MEDROL [Concomitant]
     Active Substance: METHYLPREDNISOLONE
     Indication: COLITIS ULCERATIVE
     Route: 048
     Dates: start: 20170415, end: 20170508
  12. IMODIUM [Concomitant]
     Active Substance: LOPERAMIDE HYDROCHLORIDE
     Route: 048
     Dates: start: 20170224

REACTIONS (1)
  - Pneumonia legionella [Recovered/Resolved with Sequelae]

NARRATIVE: CASE EVENT DATE: 20170417
